FAERS Safety Report 10378399 (Version 1)
Quarter: 2014Q1

REPORT INFORMATION
  Report Type: Spontaneous
  Country: US (occurrence: None)
  Receive Date: 20140306
  Receipt Date: 20140306
  Transmission Date: 20141002
  Serious: Yes (Other)
  Sender: FDA-Public Use
  Company Number: 1163-21880-13014431

PATIENT
  Age: 53 Year
  Sex: Female
  Weight: 41.73 kg

DRUGS (4)
  1. REVLIMID [Suspect]
     Indication: PLASMA CELL MYELOMA
     Dosage: MWF
     Route: 048
     Dates: start: 20121001, end: 20130206
  2. OXYCONTIN (OXYCODONE HYDROCHLORIDE) [Concomitant]
  3. PERCOCET (OXYCOCET) [Concomitant]
  4. POTASSIUM GLUCONATE (POTASSIUM GLUCONATE) UNKNOWN [Concomitant]

REACTIONS (1)
  - Haemoglobin decreased [None]
